FAERS Safety Report 6470302-6 (Version None)
Quarter: 2009Q4

REPORT INFORMATION
  Report Type: 
  Country: None (occurrence: None)
  Receive Date: 20091201
  Receipt Date: 20091120
  Transmission Date: 20100525
  Serious: Yes (Death, Hospitalization)
  Sender: FDA-Public Use
  Company Number: 2009AL007386

PATIENT
  Age: 36 Month
  Sex: Male

DRUGS (1)
  1. ACYCLOVIR [Suspect]
     Indication: EMPROSTHOTONUS

REACTIONS (11)
  - ALTERED STATE OF CONSCIOUSNESS [None]
  - CHOREOATHETOSIS [None]
  - CONSCIOUSNESS FLUCTUATING [None]
  - DRUG RESISTANCE [None]
  - ENCEPHALITIS HERPES [None]
  - MOTOR DYSFUNCTION [None]
  - PARTIAL SEIZURES [None]
  - PYREXIA [None]
  - RESPIRATORY FAILURE [None]
  - SPEECH DISORDER [None]
  - STATUS EPILEPTICUS [None]
